FAERS Safety Report 20389083 (Version 1)
Quarter: 2022Q1

REPORT INFORMATION
  Report Type: Spontaneous
  Country: US (occurrence: US)
  Receive Date: 20220128
  Receipt Date: 20220128
  Transmission Date: 20220423
  Serious: No
  Sender: FDA-Public Use
  Company Number: US-SANOFI-00937527

PATIENT
  Age: 77 Year
  Sex: Female

DRUGS (2)
  1. LANTUS SOLOSTAR [Suspect]
     Active Substance: INSULIN GLARGINE
     Indication: Type 2 diabetes mellitus
     Dosage: 18 IU
  2. LANTUS SOLOSTAR [Suspect]
     Active Substance: INSULIN GLARGINE
     Dosage: DRUG STRUCTURE DOSAGE : 24-25 UNITS DRUG INTERVAL DOSAGE : ONCE A DAY

REACTIONS (5)
  - Headache [Recovering/Resolving]
  - Incorrect dose administered by device [Unknown]
  - Device operational issue [Unknown]
  - Intentional product use issue [Unknown]
  - Blood glucose increased [Unknown]
